FAERS Safety Report 7503008-2 (Version None)
Quarter: 2011Q2

REPORT INFORMATION
  Report Type: 
  Country: None (occurrence: None)
  Receive Date: 20110525
  Receipt Date: 20100929
  Transmission Date: 20111010
  Serious: No
  Sender: FDA-Public Use
  Company Number: US-NOVEN-ALL1-2010-05129

PATIENT
  Sex: Male
  Weight: 23.129 kg

DRUGS (2)
  1. DAYTRANA [Suspect]
     Dosage: 20 MG, 1X/DAY:QD
     Route: 062
     Dates: start: 20100901
  2. DITROPAN [Concomitant]
     Dosage: 5 MG, 2X/DAY:BID
     Route: 048
     Dates: start: 20090601

REACTIONS (1)
  - DRUG EFFECT DELAYED [None]
